FAERS Safety Report 6196265-9 (Version None)
Quarter: 2009Q2

REPORT INFORMATION
  Report Type: 
  Country: None (occurrence: None)
  Receive Date: 20090520
  Receipt Date: 20090511
  Transmission Date: 20091009
  Serious: Yes (Hospitalization, Other)
  Sender: FDA-Public Use
  Company Number: US-AMGEN-COG346579

PATIENT
  Sex: Male

DRUGS (3)
  1. ENBREL [Suspect]
     Indication: PSORIASIS
  2. ENBREL [Suspect]
     Indication: PSORIATIC ARTHROPATHY
  3. INSULIN [Concomitant]

REACTIONS (4)
  - HEREDITARY DISORDER [None]
  - PSORIASIS [None]
  - PSORIATIC ARTHROPATHY [None]
  - THROMBOSIS [None]
